FAERS Safety Report 25220739 (Version 1)
Quarter: 2025Q2

REPORT INFORMATION
  Report Type: Spontaneous
  Country: US (occurrence: US)
  Receive Date: 20250421
  Receipt Date: 20250421
  Transmission Date: 20250716
  Serious: Yes (Death, Life-Threatening, Other)
  Sender: COVIS PHARMA GMBH
  Company Number: US-AMAGP-2025COV00445

PATIENT
  Age: 58 Year
  Sex: Female
  Weight: 102.6 kg

DRUGS (1)
  1. FERAHEME [Suspect]
     Active Substance: FERUMOXYTOL NON-STOICHIOMETRIC MAGNETITE
     Indication: Iron deficiency anaemia
     Route: 042
     Dates: start: 20250409, end: 20250409

REACTIONS (6)
  - Agonal respiration [Fatal]
  - Unresponsive to stimuli [Fatal]
  - Pulse absent [Fatal]
  - Cyanosis [Not Recovered/Not Resolved]
  - Pallor [Not Recovered/Not Resolved]
  - Dyspnoea [Not Recovered/Not Resolved]

NARRATIVE: CASE EVENT DATE: 20250409
